FAERS Safety Report 6348710-3 (Version None)
Quarter: 2009Q3

REPORT INFORMATION
  Report Type: 
  Country: None (occurrence: None)
  Receive Date: 20090911
  Receipt Date: 20090902
  Transmission Date: 20100115
  Serious: Yes (Other)
  Sender: FDA-Public Use
  Company Number: PHHY2009FR37881

PATIENT
  Age: 50 Year
  Sex: Female

DRUGS (1)
  1. TEGRETOL [Suspect]
     Indication: MENTAL DISORDER
     Dosage: 200 MG, UNK
     Route: 048

REACTIONS (2)
  - ALOPECIA [None]
  - HAEMOLYTIC ANAEMIA [None]
